FAERS Safety Report 17196638 (Version 1)
Quarter: 2019Q4

REPORT INFORMATION
  Report Type: Spontaneous
  Country: IR (occurrence: IR)
  Receive Date: 20191224
  Receipt Date: 20191224
  Transmission Date: 20200122
  Serious: Yes (Death, Hospitalization, Other)
  Sender: FDA-Public Use
  Company Number: NVSC2019IR077995

PATIENT
  Age: 40 Year
  Sex: Female

DRUGS (4)
  1. METHYLPREDNISOLONE. [Suspect]
     Active Substance: METHYLPREDNISOLONE
     Indication: MULTIPLE SCLEROSIS RELAPSE
     Dosage: 100 MG, QD
     Route: 042
  2. CYCLOPHOSPHAMIDE. [Suspect]
     Active Substance: CYCLOPHOSPHAMIDE
     Indication: MULTIPLE SCLEROSIS RELAPSE
     Dosage: 1 G/M2
     Route: 042
  3. RITUXIMAB. [Suspect]
     Active Substance: RITUXIMAB
     Indication: MULTIPLE SCLEROSIS RELAPSE
     Dosage: 1 G, Q2MO (TWO 1 G INFUSIONS, 15 DAYS)
     Route: 041
  4. FINGOLIMOD. [Suspect]
     Active Substance: FINGOLIMOD
     Indication: RELAPSING-REMITTING MULTIPLE SCLEROSIS
     Dosage: UNK
     Route: 065

REACTIONS (12)
  - Confusional state [Fatal]
  - Quadriplegia [Fatal]
  - Urinary incontinence [Fatal]
  - Hemiparesis [Recovering/Resolving]
  - Abnormal behaviour [Fatal]
  - Therapy non-responder [Unknown]
  - Product use in unapproved indication [Unknown]
  - Muscle spasticity [Fatal]
  - Rebound effect [Fatal]
  - Encephalopathy [Fatal]
  - Multiple sclerosis relapse [Unknown]
  - Aphasia [Fatal]
